FAERS Safety Report 7315044-X (Version None)
Quarter: 2011Q1

REPORT INFORMATION
  Report Type: 
  Country: None (occurrence: None)
  Receive Date: 20110225
  Receipt Date: 20100318
  Transmission Date: 20110831
  Serious: No
  Sender: FDA-Public Use
  Company Number: US-MYLANLABS-2010S1004635

PATIENT
  Age: 25 Year
  Sex: Female

DRUGS (3)
  1. AMNESTEEM [Suspect]
     Route: 048
     Dates: start: 20100301, end: 20100312
  2. AMNESTEEM [Suspect]
     Indication: ACNE CYSTIC
     Route: 048
     Dates: start: 20091101
  3. CLARAVIS [Suspect]
     Indication: ACNE CYSTIC

REACTIONS (1)
  - MOOD ALTERED [None]
